FAERS Safety Report 5743798-2 (Version None)
Quarter: 2008Q2

REPORT INFORMATION
  Report Type: 
  Country: None (occurrence: None)
  Receive Date: 20080519
  Receipt Date: 20080519
  Transmission Date: 20081010
  Serious: Yes (Other)
  Sender: FDA-Public Use
  Company Number: None

PATIENT
  Sex: Male
  Weight: 19.5047 kg

DRUGS (1)
  1. CEPHALEXIN [Suspect]
     Indication: PHARYNGOLARYNGEAL PAIN
     Dosage: 1 TSP    TID       PO
     Route: 048
     Dates: start: 20080512, end: 20080514

REACTIONS (1)
  - URTICARIA [None]
